FAERS Safety Report 22295566 (Version 1)
Quarter: 2023Q2

REPORT INFORMATION
  Report Type: Spontaneous
  Country: US (occurrence: None)
  Receive Date: 20230506
  Receipt Date: 20230506
  Transmission Date: 20230722
  Serious: Yes (Other)
  Sender: FDA-Public Use
  Company Number: None

PATIENT
  Age: 47 Year
  Sex: Male
  Weight: 83.25 kg

DRUGS (15)
  1. QELBREE [Suspect]
     Active Substance: VILOXAZINE HYDROCHLORIDE
     Indication: Attention deficit hyperactivity disorder
     Dosage: OTHER QUANTITY : 2 CAPSULE(S);?
     Route: 048
     Dates: start: 20230318, end: 20230502
  2. TRINTELLIX [Concomitant]
  3. GABAPENTIN [Concomitant]
  4. LISINOPRIL [Concomitant]
  5. ALLOPURINOL [Concomitant]
  6. XANAX [Concomitant]
     Active Substance: ALPRAZOLAM
  7. TRAZODONE [Concomitant]
     Active Substance: TRAZODONE HYDROCHLORIDE
  8. Benadryl [Concomitant]
  9. MAGNESIUM [Concomitant]
     Active Substance: MAGNESIUM
  10. VITAMIN D [Concomitant]
     Active Substance: VITAMIN D NOS
  11. Multi Vitamin [Concomitant]
  12. DIETARY SUPPLEMENT [Concomitant]
     Active Substance: DIETARY SUPPLEMENT
  13. MELATONIN [Concomitant]
     Active Substance: MELATONIN
  14. TYLENOL [Concomitant]
     Active Substance: ACETAMINOPHEN
  15. alieve [Concomitant]

REACTIONS (21)
  - Mental disorder [None]
  - Sleep disorder [None]
  - Mania [None]
  - Crying [None]
  - Panic attack [None]
  - Suicidal ideation [None]
  - Insomnia [None]
  - Mood swings [None]
  - Agitation [None]
  - Therapy cessation [None]
  - Withdrawal syndrome [None]
  - Migraine [None]
  - Hallucination, visual [None]
  - Feeling of despair [None]
  - Anxiety [None]
  - Gastrooesophageal reflux disease [None]
  - Dry mouth [None]
  - Depression [None]
  - Fatigue [None]
  - Heart rate increased [None]
  - Blood pressure increased [None]

NARRATIVE: CASE EVENT DATE: 20230505
